FAERS Safety Report 6862695-2 (Version None)
Quarter: 2010Q3

REPORT INFORMATION
  Report Type: 
  Country: None (occurrence: None)
  Receive Date: 20100721
  Receipt Date: 20100709
  Transmission Date: 20110219
  Serious: Yes (Hospitalization, Other)
  Sender: FDA-Public Use
  Company Number: US-ROCHE-675225

PATIENT
  Sex: Female
  Weight: 41.7 kg

DRUGS (14)
  1. ACCUTANE [Suspect]
     Route: 048
     Dates: start: 19960804, end: 19961112
  2. ACCUTANE [Suspect]
     Route: 048
     Dates: start: 19961112, end: 19970101
  3. ACCUTANE [Suspect]
     Route: 048
     Dates: start: 20041013, end: 20050113
  4. ACCUTANE [Suspect]
     Route: 048
     Dates: start: 20050301, end: 20050401
  5. AMNESTEEM [Suspect]
     Route: 048
     Dates: start: 20050404, end: 20050505
  6. SOTRET [Suspect]
     Route: 048
     Dates: start: 20050505, end: 20050801
  7. ADDERALL XR 10 [Concomitant]
     Dates: start: 20010901
  8. ADDERALL 10 [Concomitant]
     Dates: start: 20010901
  9. CELEXA [Concomitant]
     Dates: start: 20010901
  10. ORTHO TRI-CYCLEN [Concomitant]
  11. ORTHO CYCLEN-28 [Concomitant]
  12. PREDNISONE [Concomitant]
     Dosage: THRICE DAILY FOR 3 DAYS, THEN TWICE DAILY FOR 2 DAYS AND ONCE DAILY FOR NEXT 2 DAYS
  13. PREDNISONE [Concomitant]
     Dosage: 20 MG X 1 WK, 40 MG X 1 WK
  14. ACLOVATE OINTMENT [Concomitant]
     Dosage: FREQUENCY BID-TID

REACTIONS (11)
  - BLOOD CHOLESTEROL INCREASED [None]
  - BLOOD IRON DECREASED [None]
  - BLOOD TRIGLYCERIDES INCREASED [None]
  - CROHN'S DISEASE [None]
  - ILEAL STENOSIS [None]
  - INFLAMMATORY BOWEL DISEASE [None]
  - INTESTINAL FISTULA [None]
  - NEUTROPHIL COUNT INCREASED [None]
  - PLATELET COUNT INCREASED [None]
  - SMALL INTESTINAL OBSTRUCTION [None]
  - WHITE BLOOD CELL COUNT INCREASED [None]
